FAERS Safety Report 20002516 (Version 4)
Quarter: 2021Q4

REPORT INFORMATION
  Report Type: Report from Study
  Country: US (occurrence: US)
  Receive Date: 20211027
  Receipt Date: 20211216
  Transmission Date: 20220303
  Serious: Yes (Hospitalization, Other)
  Sender: FDA-Public Use
  Company Number: US-BOEHRINGERINGELHEIM-2021-BI-079571

PATIENT
  Age: 77 Year
  Sex: Female

DRUGS (2)
  1. OFEV [Suspect]
     Active Substance: NINTEDANIB
     Indication: Idiopathic pulmonary fibrosis
     Route: 048
     Dates: start: 20181212
  2. OFEV [Suspect]
     Active Substance: NINTEDANIB
     Dates: start: 20200424, end: 20211001

REACTIONS (29)
  - Haematuria [Not Recovered/Not Resolved]
  - Ulcer haemorrhage [Unknown]
  - Pulmonary hypertension [Unknown]
  - Idiopathic pulmonary fibrosis [Not Recovered/Not Resolved]
  - Disease progression [Not Recovered/Not Resolved]
  - Ulcer [Recovered/Resolved]
  - Oxygen saturation increased [Not Recovered/Not Resolved]
  - Arthralgia [Unknown]
  - Heart rate abnormal [Unknown]
  - Bone pain [Unknown]
  - Urine odour abnormal [Unknown]
  - Chronic obstructive pulmonary disease [Not Recovered/Not Resolved]
  - Wheezing [Recovered/Resolved]
  - Lung disorder [Unknown]
  - Listless [Unknown]
  - Inflammation [Not Recovered/Not Resolved]
  - Feeling abnormal [Unknown]
  - Diarrhoea [Not Recovered/Not Resolved]
  - Weight decreased [Unknown]
  - Cough [Not Recovered/Not Resolved]
  - Illness [Not Recovered/Not Resolved]
  - Speech disorder [Not Recovered/Not Resolved]
  - Fatigue [Not Recovered/Not Resolved]
  - Malaise [Not Recovered/Not Resolved]
  - Blood pressure increased [Not Recovered/Not Resolved]
  - Heart rate increased [Not Recovered/Not Resolved]
  - Asthenia [Unknown]
  - Urinary tract infection [Not Recovered/Not Resolved]
  - Asthenia [Not Recovered/Not Resolved]

NARRATIVE: CASE EVENT DATE: 20190101
